FAERS Safety Report 9476201 (Version 1)
Quarter: 2013Q3

REPORT INFORMATION
  Report Type: Spontaneous
  Country: US (occurrence: US)
  Receive Date: 20130826
  Receipt Date: 20130826
  Transmission Date: 20140515
  Serious: Yes (Hospitalization, Other)
  Sender: FDA-Public Use
  Company Number: US-SANOFI-AVENTIS-2013SA083548

PATIENT
  Sex: 0

DRUGS (3)
  1. LANTUS [Suspect]
     Route: 058
  2. LEVEMIR [Concomitant]
  3. LOSARTAN [Concomitant]

REACTIONS (10)
  - Diabetic ketoacidosis [Unknown]
  - Condition aggravated [Unknown]
  - Deep vein thrombosis [Unknown]
  - Blood glucose increased [Unknown]
  - Blood potassium decreased [Unknown]
  - Visual impairment [Recovering/Resolving]
  - Hypotension [Unknown]
  - Stress [Recovering/Resolving]
  - Blood glucose fluctuation [Unknown]
  - Weight increased [Unknown]
